FAERS Safety Report 4555257-3 (Version None)
Quarter: 2004Q4

REPORT INFORMATION
  Report Type: 
  Country: None (occurrence: None)
  Receive Date: 20041217
  Receipt Date: 20040831
  Transmission Date: 20050328
  Serious: No
  Sender: FDA-Public Use
  Company Number: 2004-BP-07554BP

PATIENT
  Age: 77 Year
  Sex: Male

DRUGS (13)
  1. SPIRIVA [Suspect]
     Indication: CHRONIC OBSTRUCTIVE AIRWAYS DISEASE
     Dosage: 18 MCG (18 MCG, 18 MCG ONCE DAILY), IH
     Route: 055
     Dates: start: 20040513
  2. OXYGEN (OXYGEN) [Concomitant]
  3. ALBUTEROL [Concomitant]
  4. THEOPHYLLINE [Concomitant]
  5. GUAFENESIN [Concomitant]
  6. PREDNISONE [Concomitant]
  7. ALPRAZOLAM [Concomitant]
  8. METFORMIN HCL [Concomitant]
  9. LODINE [Concomitant]
  10. RIFAMPICIN [Concomitant]
  11. CLARITHROMYCIN [Concomitant]
  12. ACETYLSALICYLIC ACID SRT [Concomitant]
  13. MULTIVITAMIN [Concomitant]

REACTIONS (1)
  - DYSPNOEA EXACERBATED [None]
